FAERS Safety Report 7068539-0 (Version None)
Quarter: 2010Q4

REPORT INFORMATION
  Report Type: 
  Country: None (occurrence: None)
  Receive Date: 20101028
  Receipt Date: 20101021
  Transmission Date: 20110411
  Serious: Yes (Other)
  Sender: FDA-Public Use
  Company Number: US-ROCHE-736233

PATIENT
  Age: 72 Year
  Sex: Female

DRUGS (1)
  1. BONIVA [Suspect]
     Indication: PRODUCT USED FOR UNKNOWN INDICATION
     Dosage: START DATE: TWO TO THREE YEARS AGO
     Route: 065
     Dates: start: 20080101

REACTIONS (3)
  - BONE DENSITY DECREASED [None]
  - FACIAL PAIN [None]
  - TOOTH DISORDER [None]
